FAERS Safety Report 6756968-1 (Version None)
Quarter: 2010Q2

REPORT INFORMATION
  Report Type: 
  Country: None (occurrence: None)
  Receive Date: 20100603
  Receipt Date: 20100603
  Transmission Date: 20101027
  Serious: Yes (Hospitalization)
  Sender: FDA-Public Use
  Company Number: None

PATIENT
  Age: 64 Year
  Sex: Male
  Weight: 73.48 kg

DRUGS (2)
  1. METOLAZONE [Suspect]
     Dosage: 2.5 MG EVERY DAY PO
     Route: 048
     Dates: start: 20091014, end: 20091113
  2. BUMETANIDE [Suspect]
     Dosage: 1 TAB BID PO
     Route: 048
     Dates: start: 20091014

REACTIONS (4)
  - CONFUSIONAL STATE [None]
  - DIZZINESS [None]
  - HYPOTENSION [None]
  - RENAL FAILURE ACUTE [None]
